FAERS Safety Report 15588735 (Version 4)
Quarter: 2019Q1

REPORT INFORMATION
  Report Type: Spontaneous
  Country: US (occurrence: US)
  Receive Date: 20181106
  Receipt Date: 20190228
  Transmission Date: 20190417
  Serious: Yes (Other)
  Sender: FDA-Public Use
  Company Number: US-AMGEN INC.-USASP2018155000

PATIENT
  Age: 45 Year
  Sex: Female

DRUGS (12)
  1. CORGARD [Concomitant]
     Active Substance: NADOLOL
     Indication: MIGRAINE WITHOUT AURA
     Dosage: 20 MG, BID, ONE HALF TABLET, CONTINUES WITH 10 MG FROM 29/JAN/2019
     Route: 048
     Dates: start: 20171212
  2. MEDROL [Concomitant]
     Active Substance: METHYLPREDNISOLONE
     Indication: MIGRAINE WITHOUT AURA
     Dosage: 4 MG, ONE PACKET AS NEEDED
     Route: 048
     Dates: start: 20180515
  3. KETOROLAC TROMETHAMINE. [Concomitant]
     Active Substance: KETOROLAC TROMETHAMINE
     Indication: MIGRAINE WITHOUT AURA
     Dosage: 30 MG, AS NECESSARY
     Dates: start: 20180515
  4. PHENERGAN [Concomitant]
     Active Substance: PROMETHAZINE HYDROCHLORIDE
     Dosage: 25 MG, AS NEEDED
     Route: 048
  5. MAGNESIUM GLUCONATE [Concomitant]
     Active Substance: MAGNESIUM GLUCONATE
     Indication: HEADACHE
     Dosage: UNK
  6. PSEUDOPHED [Concomitant]
     Dosage: 30-60 MG
  7. DOXEPIN HCL [Concomitant]
     Active Substance: DOXEPIN HYDROCHLORIDE
     Indication: MIGRAINE WITHOUT AURA
     Dosage: 25 MG, QHS AND ON 26/JUN/2018 STARTED 10 MG,QHS, TO BE TAKEN WITH 25MG FOR TOTAL OF 35MG, 2 TABS
     Dates: start: 20171212
  8. SINEQUAN [Concomitant]
     Active Substance: DOXEPIN HYDROCHLORIDE
     Dosage: 25 MG, UNK,NIGHTLY
  9. AIMOVIG [Suspect]
     Active Substance: ERENUMAB-AOOE
     Indication: MIGRAINE PROPHYLAXIS
     Dosage: 70 MG, QMO
     Route: 065
     Dates: start: 20181002, end: 20181102
  10. JUNEL [Concomitant]
     Active Substance: ETHINYL ESTRADIOL\NORETHINDRONE ACETATE
     Dosage: 1.5-30MG-MCG, 1 DAILY
     Route: 048
  11. LYRICA [Concomitant]
     Active Substance: PREGABALIN
     Dosage: 100 MG, QD
  12. TORADOL [Concomitant]
     Active Substance: KETOROLAC TROMETHAMINE
     Dosage: 15 MG, AS NECESSARY, SYRINGE
     Route: 030
     Dates: start: 20180515

REACTIONS (11)
  - Nausea [Unknown]
  - Facial pain [Unknown]
  - Back pain [Unknown]
  - Vision blurred [Recovered/Resolved]
  - Myalgia [Unknown]
  - Temperature intolerance [Unknown]
  - Abnormal behaviour [Unknown]
  - Drug ineffective [Unknown]
  - Paraesthesia [Recovered/Resolved]
  - Balance disorder [Unknown]
  - Fatigue [Unknown]

NARRATIVE: CASE EVENT DATE: 2018
